FAERS Safety Report 7636347-5 (Version None)
Quarter: 2011Q3

REPORT INFORMATION
  Report Type: 
  Country: None (occurrence: None)
  Receive Date: 20110726
  Receipt Date: 20110720
  Transmission Date: 20111222
  Serious: Yes (Hospitalization)
  Sender: FDA-Public Use
  Company Number: US-GLAXOSMITHKLINE-A0937478A

PATIENT
  Age: 64 Year
  Sex: Male

DRUGS (10)
  1. DIOVAN [Concomitant]
  2. ZOCOR [Concomitant]
  3. LAMICTAL [Suspect]
     Indication: BIPOLAR DISORDER
     Dosage: 200MG PER DAY
     Route: 048
     Dates: start: 20100720
  4. ATENOLOL [Concomitant]
  5. ZOLOFT [Concomitant]
  6. TRICOL SOFTGEL [Concomitant]
  7. AMPHETAMINE [Concomitant]
  8. JANUVIA [Concomitant]
  9. LOPRESSOR [Concomitant]
  10. HYDROCHLOROTHIAZIDE [Concomitant]

REACTIONS (7)
  - NEUROPATHY PERIPHERAL [None]
  - HYPOTENSION [None]
  - MALAISE [None]
  - VENTRICULAR FIBRILLATION [None]
  - EXTENSOR PLANTAR RESPONSE [None]
  - PAIN [None]
  - CLONUS [None]
